FAERS Safety Report 20415849 (Version 2)
Quarter: 2022Q1

REPORT INFORMATION
  Report Type: Report from Study
  Country: CA (occurrence: CA)
  Receive Date: 20220202
  Receipt Date: 20220215
  Transmission Date: 20220424
  Serious: Yes (Other)
  Sender: FDA-Public Use
  Company Number: CA-JNJFOC-20210860960

PATIENT
  Age: 40 Year
  Sex: Female

DRUGS (1)
  1. REMICADE [Suspect]
     Active Substance: INFLIXIMAB
     Indication: Crohn^s disease
     Dosage: 21/SEP/2021 THE PATIENT RECEIVED THE DOSE.?EXIPIRY DATE ALSO REPORTED AS 30-JUN-2024
     Route: 042
     Dates: start: 20130910

REACTIONS (5)
  - Basedow^s disease [Unknown]
  - Fungal infection [Recovered/Resolved]
  - Oral candidiasis [Recovered/Resolved]
  - Malaise [Unknown]
  - Dyspepsia [Unknown]

NARRATIVE: CASE EVENT DATE: 20210822
